FAERS Safety Report 25660988 (Version 1)
Quarter: 2025Q3

REPORT INFORMATION
  Report Type: Spontaneous
  Country: US (occurrence: None)
  Receive Date: 20250808
  Receipt Date: 20250808
  Transmission Date: 20251021
  Serious: Yes (Other)
  Sender: FDA-CTU
  Company Number: None

PATIENT
  Sex: Male

DRUGS (10)
  1. INLYTA [Suspect]
     Active Substance: AXITINIB
     Route: 048
     Dates: start: 20250213
  2. CALCIUM [Concomitant]
     Active Substance: CALCIUM
  3. INLYTA [Concomitant]
     Active Substance: AXITINIB
  4. LENVIMA [Concomitant]
     Active Substance: LENVATINIB
  5. LOMOTIL [Concomitant]
     Active Substance: ATROPINE SULFATE\DIPHENOXYLATE HYDROCHLORIDE
  6. PREDNISONE [Concomitant]
     Active Substance: PREDNISONE
  7. TYLENOL [Concomitant]
     Active Substance: ACETAMINOPHEN
  8. VITAMIN C [Concomitant]
     Active Substance: ASCORBIC ACID
  9. VITAMIN D [Concomitant]
     Active Substance: VITAMIN D NOS
  10. WELIREG [Concomitant]
     Active Substance: BELZUTIFAN

REACTIONS (3)
  - Lymphadenopathy [None]
  - Therapy cessation [None]
  - Abdominal lymphadenopathy [None]
